FAERS Safety Report 4570288-5 (Version None)
Quarter: 2005Q1

REPORT INFORMATION
  Report Type: 
  Country: None (occurrence: None)
  Receive Date: 20050202
  Receipt Date: 20050118
  Transmission Date: 20050727
  Serious: Yes (Other)
  Sender: FDA-Public Use
  Company Number: 8008270

PATIENT
  Age: 32 Year
  Sex: Female

DRUGS (6)
  1. KEPPRA [Suspect]
     Dosage: 1000MG 2/D
     Dates: start: 20040924, end: 20041102
  2. KEPPRA [Suspect]
     Dates: start: 20041103
  3. LEVONORGESTREL AND ETHINYL ESTRADIOL [Concomitant]
  4. FURABID [Suspect]
     Indication: CYSTITIS
     Dosage: 100MG 2/D
     Dates: start: 20041026, end: 20041031
  5. LAMICTAL [Suspect]
     Dosage: 50MG/D
     Dates: start: 20041006, end: 20041102
  6. BURROUGHS WELLCOME [Suspect]
     Dates: start: 20041103

REACTIONS (4)
  - CONDITION AGGRAVATED [None]
  - CONVULSION [None]
  - CYSTITIS [None]
  - DRUG INTERACTION [None]
